FAERS Safety Report 5064136-7 (Version None)
Quarter: 2006Q3

REPORT INFORMATION
  Report Type: 
  Country: None (occurrence: None)
  Receive Date: 20060728
  Receipt Date: 20050708
  Transmission Date: 20061208
  Serious: No
  Sender: FDA-Public Use
  Company Number: US-GLAXOSMITHKLINE-A0565546A

PATIENT
  Age: 7 Week
  Sex: Female

DRUGS (2)
  1. ZANTAC [Suspect]
     Route: 048
     Dates: start: 20050601, end: 20050701
  2. MYLICON [Concomitant]

REACTIONS (3)
  - ANOREXIA [None]
  - OVERDOSE [None]
  - SLEEP DISORDER [None]
